FAERS Safety Report 8297923-2 (Version None)
Quarter: 2012Q2

REPORT INFORMATION
  Report Type: 
  Country: None (occurrence: None)
  Receive Date: 20120419
  Receipt Date: 20120321
  Transmission Date: 20120825
  Serious: Yes (Hospitalization)
  Sender: FDA-Public Use
  Company Number: TW-BRISTOL-MYERS SQUIBB COMPANY-16509929

PATIENT
  Age: 58 Year
  Sex: Female

DRUGS (4)
  1. GLIPIZIDE [Concomitant]
  2. ATIVAN [Concomitant]
  3. INDERAL [Concomitant]
  4. ONGLYZA [Suspect]
     Dates: start: 20110720, end: 20110918

REACTIONS (4)
  - LEUKOCYTURIA [None]
  - HEPATIC FUNCTION ABNORMAL [None]
  - BLOOD CHOLESTEROL ABNORMAL [None]
  - FATIGUE [None]
